FAERS Safety Report 7157612-4 (Version None)
Quarter: 2010Q4

REPORT INFORMATION
  Report Type: 
  Country: None (occurrence: None)
  Receive Date: 20101214
  Receipt Date: 20100303
  Transmission Date: 20110411
  Serious: Yes (Other)
  Sender: FDA-Public Use
  Company Number: US-ASTRAZENECA-2010SE09189

PATIENT

DRUGS (2)
  1. CRESTOR [Suspect]
     Route: 048
  2. NIASPAN [Suspect]
     Route: 065

REACTIONS (1)
  - RHABDOMYOLYSIS [None]
